FAERS Safety Report 9189679 (Version 1)
Quarter: 2013Q1

REPORT INFORMATION
  Report Type: Spontaneous
  Country: US (occurrence: US)
  Receive Date: 20130326
  Receipt Date: 20130326
  Transmission Date: 20140127
  Serious: Yes (Other)
  Sender: FDA-Public Use
  Company Number: US-BAYER-2013-034138

PATIENT
  Age: 57 Year
  Sex: Male
  Weight: 95.24 kg

DRUGS (8)
  1. ALEVE [Suspect]
     Dosage: 2 DF, 1 AT 19:00 AND ANOTHER AT 20:00
     Route: 048
     Dates: start: 20130314
  2. ALEVE [Suspect]
  3. BLOOD PRESSURE MEDICATION (NOS) [Concomitant]
  4. ATENOLOL [Concomitant]
  5. LORATADINE [Concomitant]
  6. ACCURETIC [Concomitant]
  7. HYDROCODONE [Concomitant]
  8. ACETAMINOPHEN [Concomitant]

REACTIONS (9)
  - Cardiac discomfort [Not Recovered/Not Resolved]
  - Pain in extremity [Not Recovered/Not Resolved]
  - Dyspnoea [Not Recovered/Not Resolved]
  - Haematochezia [Not Recovered/Not Resolved]
  - Panic attack [None]
  - Hyperhidrosis [None]
  - Abdominal pain upper [None]
  - Chest pain [None]
  - Nicotine dependence [None]
